FAERS Safety Report 14315870 (Version 7)
Quarter: 2019Q1

REPORT INFORMATION
  Report Type: Report from Study
  Country: JP (occurrence: JP)
  Receive Date: 20171221
  Receipt Date: 20190210
  Transmission Date: 20190417
  Serious: Yes (Hospitalization, Disabling, Other)
  Sender: FDA-Public Use
  Company Number: JP-BEH-2017085055

PATIENT
  Age: 67 Year
  Sex: Male
  Weight: 74.4 kg

DRUGS (11)
  1. BERIPLEX P/N [Suspect]
     Active Substance: COAGULATION FACTOR IX HUMAN\COAGULATION FACTOR VII HUMAN\COAGULATION FACTOR X HUMAN\PROTEIN C\PROTEIN S HUMAN\PROTHROMBIN
     Dosage: 1000 IU, SINGLE
     Route: 042
     Dates: start: 20171101, end: 20171101
  2. AMLODIPINE BESILATE [Concomitant]
     Active Substance: AMLODIPINE BESYLATE
     Dosage: 5 MG, MORNING AND  EVENING
     Route: 048
     Dates: end: 20171031
  3. BLOOD CELLS, PACKED HUMAN [Concomitant]
     Active Substance: HUMAN RED BLOOD CELL
     Route: 065
  4. BAYASPIRIN [Concomitant]
     Active Substance: ASPIRIN
     Indication: HEART VALVE REPLACEMENT
     Dosage: 100 MG, UNK
     Route: 048
     Dates: start: 2008, end: 20171031
  5. THYRADIN [Concomitant]
     Active Substance: LEVOTHYROXINE
     Dosage: 150 MG, UNK
     Route: 048
     Dates: end: 20171031
  6. BERIPLEX P/N [Suspect]
     Active Substance: COAGULATION FACTOR IX HUMAN\COAGULATION FACTOR VII HUMAN\COAGULATION FACTOR X HUMAN\PROTEIN C\PROTEIN S HUMAN\PROTHROMBIN
     Indication: SURGERY
     Dosage: 500 IU, SINGLE
     Route: 042
     Dates: start: 20171101, end: 20171101
  7. PLASMA, FRESH FROZEN [Concomitant]
     Active Substance: HUMAN PLASMA
     Route: 065
  8. CARVEDILOL. [Concomitant]
     Active Substance: CARVEDILOL
     Dosage: 10 MG, UNK
     Route: 048
     Dates: end: 20171031
  9. HEPARIN [Concomitant]
     Active Substance: HEPARIN SODIUM
     Indication: PROSTHESIS IMPLANTATION
     Dosage: UNK
     Route: 065
     Dates: start: 20171101, end: 20171101
  10. PROTAMINE [Concomitant]
     Active Substance: PROTAMINE
     Dosage: UNK
     Route: 065
     Dates: start: 20171101, end: 20171101
  11. WARFARIN POTASSIUM [Concomitant]
     Active Substance: WARFARIN POTASSIUM
     Indication: HEART VALVE REPLACEMENT
     Dosage: 4.5 MG, UNK
     Route: 048
     Dates: start: 20081001, end: 20171031

REACTIONS (5)
  - Cerebral infarction [Recovered/Resolved with Sequelae]
  - Cardiac tamponade [Recovered/Resolved]
  - Seizure [Recovered/Resolved with Sequelae]
  - Post procedural pneumonia [Recovering/Resolving]
  - Hemiplegia [Recovered/Resolved with Sequelae]

NARRATIVE: CASE EVENT DATE: 20171102
